FAERS Safety Report 25336439 (Version 2)
Quarter: 2025Q4

REPORT INFORMATION
  Report Type: Spontaneous
  Country: EU (occurrence: EU)
  Receive Date: 20250520
  Receipt Date: 20251217
  Transmission Date: 20260117
  Serious: Yes (Hospitalization, Other)
  Sender: MERCK SHARP & DOHME LLC
  Company Number: None

PATIENT
  Age: 82 Year
  Sex: Female
  Weight: 73.3 kg

DRUGS (2)
  1. KEYTRUDA [Suspect]
     Active Substance: PEMBROLIZUMAB
     Indication: Metastatic carcinoma of the bladder
     Dosage: STRENGTH: 25 MG/ML
     Route: 042
     Dates: start: 20241118
  2. PADCEV [Suspect]
     Active Substance: ENFORTUMAB VEDOTIN-EJFV
     Indication: Metastatic carcinoma of the bladder
     Route: 042
     Dates: start: 20241118

REACTIONS (8)
  - Asthenia [Recovering/Resolving]
  - Pruritus [Recovering/Resolving]
  - Dyspnoea exertional [Recovering/Resolving]
  - Gastrointestinal disorder [Recovering/Resolving]
  - Hyperaesthesia [Recovering/Resolving]
  - Troponin increased [Not Recovered/Not Resolved]
  - Type 1 diabetes mellitus [Not Recovered/Not Resolved]
  - Myocarditis [Not Recovered/Not Resolved]

NARRATIVE: CASE EVENT DATE: 20241209
